FAERS Safety Report 12369138 (Version 3)
Quarter: 2021Q3

REPORT INFORMATION
  Report Type: Spontaneous
  Country: US (occurrence: US)
  Receive Date: 20160513
  Receipt Date: 20210714
  Transmission Date: 20211014
  Serious: Yes (Hospitalization)
  Sender: FDA-Public Use
  Company Number: US-AUROBINDO-AUR-APL-2016-05749

PATIENT
  Age: 18 Year
  Sex: Male

DRUGS (1)
  1. TRIMETHOPRIM+SULFAMETHOXAZOLE [Suspect]
     Active Substance: SULFAMETHOXAZOLE\TRIMETHOPRIM
     Indication: NAIL INFECTION
     Dosage: UNK
     Route: 065

REACTIONS (6)
  - Psychotic disorder [Recovered/Resolved]
  - Intentional self-injury [Recovered/Resolved]
  - Affective disorder [Unknown]
  - Agitation [Unknown]
  - Hallucination [Unknown]
  - Depression [Unknown]

NARRATIVE: CASE EVENT DATE: 201501
